FAERS Safety Report 5028226-7 (Version None)
Quarter: 2006Q2

REPORT INFORMATION
  Report Type: 
  Country: None (occurrence: None)
  Receive Date: 20060609
  Receipt Date: 20060525
  Transmission Date: 20061013
  Serious: Yes (Hospitalization)
  Sender: FDA-Public Use
  Company Number: 2006SP002068

PATIENT
  Sex: Female

DRUGS (1)
  1. XOPENEX HFA [Suspect]
     Dosage: INHALATION
     Route: 055
     Dates: start: 20060425, end: 20060501

REACTIONS (1)
  - CARDIAC DISORDER [None]
